FAERS Safety Report 19662423 (Version 1)
Quarter: 2021Q3

REPORT INFORMATION
  Report Type: Report from Study
  Country: IN (occurrence: IN)
  Receive Date: 20210805
  Receipt Date: 20210805
  Transmission Date: 20211014
  Serious: Yes (Other)
  Sender: FDA-Public Use
  Company Number: IN-TAKEDA-2021TUS049018

PATIENT
  Sex: Male

DRUGS (1)
  1. HEMOFIL M [Suspect]
     Active Substance: ANTIHEMOPHILIC FACTOR HUMAN
     Indication: FACTOR VIII DEFICIENCY
     Dosage: 500 IU, UNK, QD
     Route: 042

REACTIONS (1)
  - Haemarthrosis [Not Recovered/Not Resolved]
